FAERS Safety Report 11337908 (Version 1)
Quarter: 2015Q3

REPORT INFORMATION
  Report Type: Spontaneous
  Country: US (occurrence: US)
  Receive Date: 20150803
  Receipt Date: 20150803
  Transmission Date: 20151125
  Serious: Yes (Other)
  Sender: FDA-Public Use
  Company Number: US-ELI_LILLY_AND_COMPANY-US201001000101

PATIENT
  Age: 49 Year
  Sex: Female
  Weight: 108.84 kg

DRUGS (11)
  1. PENTASA [Concomitant]
     Active Substance: MESALAMINE
  2. AMBIEN CR [Concomitant]
     Active Substance: ZOLPIDEM TARTRATE
     Dosage: 1 D/F, EACH EVENING
  3. XYZAL [Concomitant]
     Active Substance: LEVOCETIRIZINE DIHYDROCHLORIDE
  4. SYNTHROID [Concomitant]
     Active Substance: LEVOTHYROXINE SODIUM
  5. PLAQUENIL [Concomitant]
     Active Substance: HYDROXYCHLOROQUINE SULFATE
  6. ZYPREXA [Suspect]
     Active Substance: OLANZAPINE
     Dosage: 1 D/F, UNK
     Dates: start: 20091208, end: 20091229
  7. ATENOLOL. [Concomitant]
     Active Substance: ATENOLOL
  8. XANAX [Concomitant]
     Active Substance: ALPRAZOLAM
     Dosage: 1 D/F, 4/D
  9. PREDNISONE. [Concomitant]
     Active Substance: PREDNISONE
  10. ZYPREXA [Suspect]
     Active Substance: OLANZAPINE
     Indication: SCHIZOPHRENIA, PARANOID TYPE
     Dosage: 5 MG, DAILY (1/D)
     Dates: start: 20001018, end: 200902
  11. NEXIUM [Concomitant]
     Active Substance: ESOMEPRAZOLE MAGNESIUM

REACTIONS (3)
  - Weight decreased [Unknown]
  - Hyponatraemic syndrome [Not Recovered/Not Resolved]
  - Weight increased [Not Recovered/Not Resolved]

NARRATIVE: CASE EVENT DATE: 20001018
